FAERS Safety Report 23432569 (Version 1)
Quarter: 2024Q1

REPORT INFORMATION
  Report Type: Report from Study
  Country: US (occurrence: US)
  Receive Date: 20240123
  Receipt Date: 20240123
  Transmission Date: 20240409
  Serious: Yes (Hospitalization, Other)
  Sender: FDA-Public Use
  Company Number: US-GILEAD-2024-0659255

PATIENT
  Age: 49 Year
  Sex: Female

DRUGS (25)
  1. AZTREONAM LYSINE [Suspect]
     Active Substance: AZTREONAM LYSINE
     Indication: Product used for unknown indication
     Dosage: UNK
     Route: 065
  2. ACETYLCYSTEINE [Concomitant]
     Active Substance: ACETYLCYSTEINE
  3. ADVAIR HFA [Concomitant]
     Active Substance: FLUTICASONE PROPIONATE\SALMETEROL XINAFOATE
  4. AZITHROMYCIN [Concomitant]
     Active Substance: AZITHROMYCIN
  5. BIAXIN [Concomitant]
     Active Substance: CLARITHROMYCIN
  6. COLACE [Concomitant]
     Active Substance: DOCUSATE SODIUM
  7. CREON [Concomitant]
     Active Substance: PANCRELIPASE AMYLASE\PANCRELIPASE LIPASE\PANCRELIPASE PROTEASE
  8. FLONASE [Concomitant]
     Active Substance: FLUTICASONE PROPIONATE
  9. FOSAMAX [Concomitant]
     Active Substance: ALENDRONATE SODIUM
  10. HYDROCHLOROTHIAZIDE [Concomitant]
     Active Substance: HYDROCHLOROTHIAZIDE
  11. IRON [Concomitant]
     Active Substance: IRON
  12. LANTUS [Concomitant]
     Active Substance: INSULIN GLARGINE
  13. LINZESS [Concomitant]
     Active Substance: LINACLOTIDE
  14. LISINOPRIL [Concomitant]
     Active Substance: LISINOPRIL
  15. MIRAPEX [Concomitant]
     Active Substance: PRAMIPEXOLE DIHYDROCHLORIDE
  16. MONTELUKAST [Concomitant]
     Active Substance: MONTELUKAST SODIUM
  17. NOVOLOG [Concomitant]
     Active Substance: INSULIN ASPART
  18. ORKAMBI [Concomitant]
     Active Substance: IVACAFTOR\LUMACAFTOR
  19. POLYETHYLENE GLYCOLS [Concomitant]
     Active Substance: POLYETHYLENE GLYCOLS
  20. POTASSIUM [Concomitant]
     Active Substance: POTASSIUM
  21. OMEPRAZOLE [Concomitant]
     Active Substance: OMEPRAZOLE
  22. SPIRIVA [Concomitant]
     Active Substance: TIOTROPIUM BROMIDE MONOHYDRATE
  23. ULORIC [Concomitant]
     Active Substance: FEBUXOSTAT
  24. CHOLECALCIFEROL [Concomitant]
     Active Substance: CHOLECALCIFEROL
  25. ZYRTEC [Concomitant]
     Active Substance: CETIRIZINE HYDROCHLORIDE

REACTIONS (5)
  - Pneumonia [Unknown]
  - Influenza [Unknown]
  - Lung disorder [Unknown]
  - Pyrexia [Unknown]
  - Infection [Unknown]
